FAERS Safety Report 6678004-8 (Version None)
Quarter: 2010Q2

REPORT INFORMATION
  Report Type: 
  Country: None (occurrence: None)
  Receive Date: 20100412
  Receipt Date: 20100310
  Transmission Date: 20101027
  Serious: No
  Sender: FDA-Public Use
  Company Number: US-BAYER-201013079BCC

PATIENT
  Age: 72 Year
  Sex: Male
  Weight: 104 kg

DRUGS (3)
  1. ALEVE [Suspect]
     Indication: BACK PAIN
     Dosage: TOTAL DAILY DOSE: 440 MG  UNIT DOSE: 220 MG
     Route: 048
     Dates: start: 20100310
  2. LISINOPRIL [Concomitant]
     Route: 065
  3. WATER PILL [Concomitant]
     Route: 065

REACTIONS (1)
  - BACK PAIN [None]
